FAERS Safety Report 4697598-5 (Version None)
Quarter: 2005Q2

REPORT INFORMATION
  Report Type: 
  Country: None (occurrence: None)
  Receive Date: 20050621
  Receipt Date: 20050603
  Transmission Date: 20051028
  Serious: Yes (Hospitalization, Other)
  Sender: FDA-Public Use
  Company Number: USA040670497

PATIENT
  Age: 35 Year
  Sex: Male
  Weight: 75 kg

DRUGS (7)
  1. ZYPREXA [Suspect]
     Indication: BIPOLAR DISORDER
     Dosage: 5 MG/1 AT BEDTIME
     Dates: start: 20030101, end: 20030701
  2. PAXIL [Concomitant]
  3. LITHIUM [Concomitant]
  4. TRICOR [Concomitant]
  5. LISINOPRIL [Concomitant]
  6. LANTUS [Concomitant]
  7. HUMALOG [Concomitant]

REACTIONS (10)
  - BLOOD TRIGLYCERIDES INCREASED [None]
  - DIABETES MELLITUS [None]
  - DIABETIC COMA [None]
  - HYPERGLYCAEMIA [None]
  - KETOSIS [None]
  - METASTASES TO LUNG [None]
  - METASTASES TO LYMPH NODES [None]
  - PANCREATITIS [None]
  - TESTIS CANCER [None]
  - WEIGHT INCREASED [None]
